FAERS Safety Report 7732532-2 (Version None)
Quarter: 2011Q3

REPORT INFORMATION
  Report Type: 
  Country: None (occurrence: None)
  Receive Date: 20110906
  Receipt Date: 20110824
  Transmission Date: 20111222
  Serious: Yes (Hospitalization)
  Sender: FDA-Public Use
  Company Number: PL-GILEAD-2009-0023207

PATIENT
  Sex: Male
  Weight: 72.867 kg

DRUGS (9)
  1. BISOPROLOL FUMARATE [Concomitant]
     Dates: start: 20090217
  2. EFAVIRENZ PLACEBO [Concomitant]
     Indication: HIV INFECTION
     Dates: start: 20090602, end: 20090728
  3. TRUVADA [Suspect]
     Indication: HIV INFECTION
     Route: 048
     Dates: start: 20090629, end: 20090727
  4. QUINAPRIL HCL [Concomitant]
     Dates: start: 20090217
  5. METAMIZOLE [Concomitant]
     Dates: start: 20090613, end: 20090615
  6. KETOPROFEN [Concomitant]
     Dates: end: 20090624
  7. TRUVADA [Suspect]
     Route: 048
     Dates: start: 20090602, end: 20090627
  8. AMLODIPINE [Concomitant]
     Dates: start: 20090217
  9. ACETYLSALICYLIC ACID SRT [Concomitant]
     Dates: start: 20090217

REACTIONS (2)
  - PYELONEPHRITIS [None]
  - LEUKOCYTURIA [None]
